FAERS Safety Report 9059612 (Version 1)
Quarter: 2013Q1

REPORT INFORMATION
  Report Type: Spontaneous
  Country: US (occurrence: None)
  Receive Date: 20130206
  Receipt Date: 20130206
  Transmission Date: 20140127
  Serious: No
  Sender: FDA-Public Use
  Company Number: None

PATIENT
  Age: 61 Year
  Sex: Male
  Weight: 77.11 kg

DRUGS (1)
  1. MONTELUKAST SODIUM [Suspect]
     Indication: ASTHMA
     Dosage: LESS THAN ONE WEEK  1 TABLET DAILY PO
     Dates: start: 20130107, end: 20130113

REACTIONS (2)
  - Ventricular extrasystoles [None]
  - Palpitations [None]
